FAERS Safety Report 5226948-6 (Version None)
Quarter: 2007Q1

REPORT INFORMATION
  Report Type: 
  Country: None (occurrence: None)
  Receive Date: 20070202
  Receipt Date: 20070126
  Transmission Date: 20070707
  Serious: Yes (Death)
  Sender: FDA-Public Use
  Company Number: PHBS2007BR01675

PATIENT
  Age: 65 Year
  Sex: Male

DRUGS (1)
  1. DIOVAN AMLO [Suspect]
     Dosage: VALS 160 / AMLO 5 MG/DAY
     Route: 048

REACTIONS (1)
  - DEATH [None]
